FAERS Safety Report 4969666-1 (Version None)
Quarter: 2006Q2

REPORT INFORMATION
  Report Type: 
  Country: None (occurrence: None)
  Receive Date: 20060411
  Receipt Date: 20060410
  Transmission Date: 20061013
  Serious: Yes (Death)
  Sender: FDA-Public Use
  Company Number: US-BOEHRINGER INGELHEIM PHARMACEUTICALS, INC.-2006-BP-04026BP

PATIENT
  Sex: Male

DRUGS (1)
  1. ATROVENT [Suspect]

REACTIONS (1)
  - ACCIDENTAL DEATH [None]
